FAERS Safety Report 14271015 (Version 1)
Quarter: 2017Q4

REPORT INFORMATION
  Report Type: Spontaneous
  Country: IN (occurrence: IN)
  Receive Date: 20171211
  Receipt Date: 20171211
  Transmission Date: 20180321
  Serious: Yes (Hospitalization, Other)
  Sender: FDA-Public Use
  Company Number: IN-IMPAX LABORATORIES, INC-2017-IPXL-03536

PATIENT
  Age: 55 Year
  Sex: Female

DRUGS (3)
  1. DESMOPRESSIN ACETATE IR [Suspect]
     Active Substance: DESMOPRESSIN ACETATE
     Dosage: UNK
     Route: 050
  2. DESMOPRESSIN ACETATE IR [Suspect]
     Active Substance: DESMOPRESSIN ACETATE
     Indication: DIABETES INSIPIDUS
     Dosage: 10 ?G,
     Route: 045
  3. DESMOPRESSIN ACETATE IR [Suspect]
     Active Substance: DESMOPRESSIN ACETATE
     Dosage: 10 ?G, ONE PUFF AT NIGHT
     Route: 045

REACTIONS (5)
  - Paralysis [Unknown]
  - Hypernatraemia [Recovered/Resolved]
  - Blood sodium abnormal [Recovered/Resolved]
  - Cystoscopy [Unknown]
  - Osmotic demyelination syndrome [Unknown]
